FAERS Safety Report 18609296 (Version 3)
Quarter: 2020Q4

REPORT INFORMATION
  Report Type: Spontaneous
  Country: HR (occurrence: HR)
  Receive Date: 20201214
  Receipt Date: 20201230
  Transmission Date: 20210114
  Serious: Yes (Hospitalization, Other)
  Sender: FDA-Public Use
  Company Number: HR-ROCHE-2730754

PATIENT
  Age: 75 Year
  Sex: Female
  Weight: 85 kg

DRUGS (9)
  1. ROACTEMRA [Suspect]
     Active Substance: TOCILIZUMAB
     Indication: RHEUMATOID ARTHRITIS
     Dosage: 20 MG/ML
     Route: 042
  2. PREDNISONE. [Concomitant]
     Active Substance: PREDNISONE
     Route: 048
     Dates: start: 20170123
  3. ROACTEMRA [Suspect]
     Active Substance: TOCILIZUMAB
     Dosage: 8 MG/KG
     Route: 042
     Dates: start: 20131216
  4. BISOPROLOL [Concomitant]
     Active Substance: BISOPROLOL
     Route: 048
  5. IBANDRONATE [Concomitant]
     Active Substance: IBANDRONATE SODIUM
     Route: 048
  6. LATANOPROST. [Concomitant]
     Active Substance: LATANOPROST
     Route: 061
  7. PREDNISONE. [Concomitant]
     Active Substance: PREDNISONE
     Dosage: 2-4 MG
     Route: 048
  8. VALSARTAN. [Concomitant]
     Active Substance: VALSARTAN
     Route: 048
  9. FURSEMIDE [Concomitant]
     Active Substance: FUROSEMIDE
     Route: 048

REACTIONS (3)
  - Psoas abscess [Recovered/Resolved with Sequelae]
  - Urinary tract infection [Unknown]
  - Pyelonephritis acute [Unknown]

NARRATIVE: CASE EVENT DATE: 20160525
